FAERS Safety Report 25222169 (Version 1)
Quarter: 2025Q2

REPORT INFORMATION
  Report Type: Spontaneous
  Country: FR (occurrence: FR)
  Receive Date: 20250421
  Receipt Date: 20250421
  Transmission Date: 20250717
  Serious: Yes (Hospitalization)
  Sender: ABBVIE
  Company Number: FR-ABBVIE-6239609

PATIENT
  Age: 46 Year
  Sex: Female
  Weight: 104 kg

DRUGS (2)
  1. RINVOQ [Suspect]
     Active Substance: UPADACITINIB
     Indication: Ankylosing spondylitis
     Dosage: SHAPE-LP
     Route: 048
     Dates: start: 202206
  2. INFLIXIMAB [Suspect]
     Active Substance: INFLIXIMAB
     Indication: Crohn^s disease
     Dosage: DOSE FORM- SOLUTION FOR INJECTION IN PRE-FILLED PEN
     Route: 058
     Dates: start: 202109, end: 20240731

REACTIONS (4)
  - Arthritis bacterial [Recovered/Resolved]
  - Joint swelling [Unknown]
  - Pneumocystis jirovecii pneumonia [Unknown]
  - Chills [Unknown]

NARRATIVE: CASE EVENT DATE: 20240731
